FAERS Safety Report 6905478-7 (Version None)
Quarter: 2010Q3

REPORT INFORMATION
  Report Type: 
  Country: None (occurrence: None)
  Receive Date: 20100804
  Receipt Date: 20100723
  Transmission Date: 20110219
  Serious: Yes (Other)
  Sender: FDA-Public Use
  Company Number: PHHY2010MX48800

PATIENT
  Age: 77 Year
  Sex: Female

DRUGS (6)
  1. ZOLEDRONIC ACID (RECLAST) [Suspect]
     Indication: OSTEOPOROSIS
     Dosage: 5 MG/100 ML PER YEAR
     Route: 042
     Dates: start: 20090501
  2. ALENDRONATE SODIUM [Concomitant]
  3. OMEPRAZOLE [Concomitant]
     Indication: GASTRITIS
     Dosage: 1 TABLET DAILY
  4. SERETIDE [Concomitant]
  5. ISOSORBIDE [Concomitant]
     Dosage: 1 TABLET DAILY
  6. PINAVERIUM BROMIDE [Concomitant]
     Indication: COLITIS
     Dosage: 3 TABLETSA DAILY

REACTIONS (4)
  - FALL [None]
  - GASTROINTESTINAL INJURY [None]
  - GASTROINTESTINAL MOTILITY DISORDER [None]
  - OESOPHAGEAL INJURY [None]
